FAERS Safety Report 4355187-6 (Version None)
Quarter: 2004Q2

REPORT INFORMATION
  Report Type: 
  Country: None (occurrence: None)
  Receive Date: 20040504
  Receipt Date: 20040421
  Transmission Date: 20050107
  Serious: Yes (Hospitalization, Disabling)
  Sender: FDA-Public Use
  Company Number: JPN-2002-002461

PATIENT
  Age: 54 Year
  Sex: Female
  Weight: 41 kg

DRUGS (8)
  1. FLUDARA [Suspect]
     Indication: CHRONIC LYMPHOCYTIC LEUKAEMIA
     Dosage: 26.8 MG, CYCLE X 5D, INTRAVENOUS
     Route: 042
     Dates: start: 20010703, end: 20010707
  2. CYCLOPHOSPHAMIDE [Suspect]
     Indication: CHRONIC LYMPHOCYTIC LEUKAEMIA
     Dosage: ORAL
     Route: 048
  3. RIBALL [Concomitant]
  4. DIFLUCAN [Concomitant]
  5. BACTRIM [Concomitant]
  6. ZANTAC [Concomitant]
  7. SELBEX (TEPRENONE) [Concomitant]
  8. EVAMYL [Concomitant]

REACTIONS (2)
  - HEPATIC FUNCTION ABNORMAL [None]
  - STEVENS-JOHNSON SYNDROME [None]
